FAERS Safety Report 25765446 (Version 1)
Quarter: 2025Q3

REPORT INFORMATION
  Report Type: Spontaneous
  Country: US (occurrence: US)
  Receive Date: 20250905
  Receipt Date: 20250905
  Transmission Date: 20251020
  Serious: No
  Sender: AUROBINDO
  Company Number: US-AUROBINDO-AUR-APL-2024-049161

PATIENT
  Sex: Female

DRUGS (1)
  1. IMATINIB [Suspect]
     Active Substance: IMATINIB
     Indication: Product used for unknown indication
     Route: 065

REACTIONS (6)
  - Dehydration [Unknown]
  - Fatigue [Unknown]
  - Brain fog [Unknown]
  - Vomiting [Unknown]
  - Dry skin [Unknown]
  - Decreased appetite [Unknown]
